FAERS Safety Report 7967029-8 (Version None)
Quarter: 2011Q4

REPORT INFORMATION
  Report Type: 
  Country: None (occurrence: None)
  Receive Date: 20111209
  Receipt Date: 20111129
  Transmission Date: 20120403
  Serious: Yes (Hospitalization)
  Sender: FDA-Public Use
  Company Number: IE-JNJFOC-20111111765

PATIENT
  Age: 3 Year
  Sex: Male

DRUGS (3)
  1. ACETAMINOPHEN [Suspect]
     Route: 048
  2. STEROIDS NOS [Concomitant]
     Indication: LOWER RESPIRATORY TRACT INFECTION
     Route: 065
  3. ACETAMINOPHEN [Suspect]
     Indication: ACCIDENTAL EXPOSURE
     Route: 048
     Dates: start: 20111120

REACTIONS (5)
  - HYPERTENSION [None]
  - RETCHING [None]
  - SOMNOLENCE [None]
  - FAILURE OF CHILD RESISTANT MECHANISM FOR PHARMACEUTICAL PRODUCT [None]
  - ACCIDENTAL DRUG INTAKE BY CHILD [None]
